FAERS Safety Report 14121886 (Version 2)
Quarter: 2018Q2

REPORT INFORMATION
  Report Type: Report from Study
  Country: US (occurrence: US)
  Receive Date: 20171024
  Receipt Date: 20180428
  Transmission Date: 20180711
  Serious: No
  Sender: FDA-Public Use
  Company Number: US-009507513-1710USA003138

PATIENT
  Age: 63 Year
  Sex: Female

DRUGS (1)
  1. DULERA [Suspect]
     Active Substance: FORMOTEROL FUMARATE DIHYDRATE\MOMETASONE FUROATE
     Indication: ASTHMA
     Dosage: 2 PUFF  TWICE DAILY (ROUTE: ORAL INHALATION)

REACTIONS (5)
  - Drug dose omission [Unknown]
  - Inappropriate schedule of drug administration [Unknown]
  - Dyspnoea [Not Recovered/Not Resolved]
  - Circumstance or information capable of leading to medication error [Unknown]
  - Off label use [Unknown]

NARRATIVE: CASE EVENT DATE: 201801
